FAERS Safety Report 15155852 (Version 1)
Quarter: 2018Q3

REPORT INFORMATION
  Report Type: Spontaneous
  Country: DE (occurrence: DE)
  Receive Date: 20180717
  Receipt Date: 20180717
  Transmission Date: 20181010
  Serious: Yes (Hospitalization)
  Sender: FDA-Public Use
  Company Number: DE-US WORLDMEDS, LLC-STA_00018521

PATIENT
  Sex: Male

DRUGS (1)
  1. APOMORPHINE HYDROCHLORIDE [Suspect]
     Active Substance: APOMORPHINE HYDROCHLORIDE
     Indication: PRODUCT USED FOR UNKNOWN INDICATION
     Dosage: 17 HOURS/DAY
     Dates: start: 20100908

REACTIONS (5)
  - Speech disorder [Unknown]
  - General physical health deterioration [Unknown]
  - Gait inability [Unknown]
  - Decreased appetite [Unknown]
  - Hallucination [Unknown]
